FAERS Safety Report 23686365 (Version 1)
Quarter: 2024Q1

REPORT INFORMATION
  Report Type: Other
  Country: RO (occurrence: RO)
  Receive Date: 20240329
  Receipt Date: 20240329
  Transmission Date: 20240410
  Serious: Yes (Other)
  Sender: FDA-Public Use
  Company Number: RO-PFIZER INC-PV202400017735

PATIENT
  Age: 27 Year
  Sex: Female

DRUGS (3)
  1. MYCOPHENOLATE MOFETIL [Suspect]
     Active Substance: MYCOPHENOLATE MOFETIL
     Indication: Lupus vasculitis
     Dosage: 2 G, DAILY
     Route: 065
  2. METHYLPREDNISOLONE SODIUM SUCCINATE [Suspect]
     Active Substance: METHYLPREDNISOLONE SODIUM SUCCINATE
     Indication: Lupus vasculitis
     Dosage: 0.5 MG/KG
     Route: 065
  3. CYCLOPHOSPHAMIDE [Suspect]
     Active Substance: CYCLOPHOSPHAMIDE
     Indication: Lupus vasculitis
     Dosage: UNK
     Route: 065

REACTIONS (4)
  - Necrosis [Unknown]
  - Muscular weakness [Unknown]
  - Paraesthesia [Unknown]
  - Off label use [Unknown]
